FAERS Safety Report 18407635 (Version 2)
Quarter: 2021Q2

REPORT INFORMATION
  Report Type: Spontaneous
  Country: US (occurrence: US)
  Receive Date: 20201020
  Receipt Date: 20210608
  Transmission Date: 20210717
  Serious: Yes (Other)
  Sender: FDA-Public Use
  Company Number: US-GILEAD-2020-0499914

PATIENT

DRUGS (1)
  1. TRUVADA [Suspect]
     Active Substance: EMTRICITABINE\TENOFOVIR DISOPROXIL FUMARATE
     Indication: PROPHYLAXIS AGAINST HIV INFECTION
     Dosage: UNK
     Route: 048
     Dates: start: 2016, end: 2018

REACTIONS (6)
  - Skeletal injury [Unknown]
  - Foot fracture [Unknown]
  - Renal injury [Unknown]
  - Tooth injury [Unknown]
  - Tooth loss [Unknown]
  - Bone density decreased [Unknown]
